FAERS Safety Report 25705351 (Version 2)
Quarter: 2025Q3

REPORT INFORMATION
  Report Type: Spontaneous
  Country: IN (occurrence: IN)
  Receive Date: 20250820
  Receipt Date: 20250821
  Transmission Date: 20251020
  Serious: Yes (Life-Threatening, Hospitalization)
  Sender: ZYDUS PHARM
  Company Number: IN-MLMSERVICE-20250808-PI601102-00106-2

PATIENT

DRUGS (2)
  1. CLOPIDOGREL [Suspect]
     Active Substance: CLOPIDOGREL BISULFATE
     Indication: Cerebrovascular accident
     Route: 048
  2. ASPIRIN [Suspect]
     Active Substance: ASPIRIN
     Indication: Cerebrovascular accident
     Route: 048

REACTIONS (5)
  - Gallbladder rupture [Recovered/Resolved]
  - Haemorrhagic cholecystitis [Recovered/Resolved]
  - Haemobilia [Recovered/Resolved]
  - Jaundice cholestatic [Recovered/Resolved]
  - Faeces discoloured [Recovered/Resolved]
